FAERS Safety Report 24672666 (Version 7)
Quarter: 2025Q2

REPORT INFORMATION
  Report Type: Report from Study
  Country: KR (occurrence: KR)
  Receive Date: 20241127
  Receipt Date: 20250521
  Transmission Date: 20250717
  Serious: Yes (Hospitalization)
  Sender: ABBVIE
  Company Number: KR-ABBVIE-6017174

PATIENT
  Age: 58 Year
  Sex: Male
  Weight: 58 kg

DRUGS (12)
  1. RINVOQ [Suspect]
     Active Substance: UPADACITINIB
     Indication: Crohn^s disease
     Route: 048
     Dates: start: 20240828, end: 20241119
  2. RINVOQ [Suspect]
     Active Substance: UPADACITINIB
     Indication: Crohn^s disease
     Route: 048
     Dates: start: 20241202
  3. PENTASA [Concomitant]
     Active Substance: MESALAMINE
     Indication: Crohn^s disease
     Route: 054
     Dates: start: 20231018, end: 20240923
  4. Hemonia [Concomitant]
     Indication: Iron deficiency anaemia
     Dosage: 150 MILLIGRAM??POLYSACCHARIDE IRON COMPLEX
     Route: 048
     Dates: start: 20241008
  5. PENTASA [Concomitant]
     Active Substance: MESALAMINE
     Indication: Crohn^s disease
     Dosage: 2 GRAM FORM STRENGTH: 1 GRAM
     Route: 048
     Dates: start: 20151114
  6. Ferrinjec [Concomitant]
     Indication: Iron deficiency anaemia
     Route: 042
     Dates: start: 20241015, end: 20241015
  7. Ferrinjec [Concomitant]
     Indication: Iron deficiency anaemia
     Dosage: 2VIAL
     Route: 042
     Dates: start: 20250124, end: 20250124
  8. Ferrinjec [Concomitant]
     Indication: Iron deficiency anaemia
     Route: 042
     Dates: start: 20241120, end: 20241120
  9. SODIUM CHLORIDE [Concomitant]
     Active Substance: SODIUM CHLORIDE
     Indication: Iron deficiency anaemia
     Dosage: 1BAG
     Route: 042
     Dates: start: 20250124, end: 20250124
  10. Peniramin [Concomitant]
     Indication: Prophylaxis
     Route: 042
     Dates: start: 20241122, end: 20241122
  11. Peniramin [Concomitant]
     Indication: Prophylaxis
     Route: 042
     Dates: start: 20241121, end: 20241121
  12. SHINGRIX [Concomitant]
     Active Substance: RECOMBINANT VARICELLA ZOSTER VIRUS (VZV) GLYCOPROTEIN E
     Indication: Prophylaxis
     Dosage: 1 VIAL
     Route: 030
     Dates: start: 20250124, end: 20250124

REACTIONS (7)
  - Iron deficiency anaemia [Recovered/Resolved]
  - Hypophosphataemia [Unknown]
  - Pyrexia [Recovered/Resolved]
  - Hypocalcaemia [Recovered/Resolved with Sequelae]
  - Rash [Recovered/Resolved with Sequelae]
  - Abdominal pain upper [Recovered/Resolved with Sequelae]
  - Nasopharyngitis [Recovered/Resolved with Sequelae]

NARRATIVE: CASE EVENT DATE: 20241101
